FAERS Safety Report 22520108 (Version 1)
Quarter: 2023Q2

REPORT INFORMATION
  Report Type: Spontaneous
  Country: US (occurrence: None)
  Receive Date: 20230602
  Receipt Date: 20230602
  Transmission Date: 20230721
  Serious: Yes (Hospitalization)
  Sender: FDA-Public Use
  Company Number: None

PATIENT
  Sex: Male
  Weight: 62.14 kg

DRUGS (8)
  1. CAPECITABINE [Suspect]
     Active Substance: CAPECITABINE
     Indication: Gallbladder cancer
     Dosage: 2000MG TWICE DAILY ORAL - 14 DAYS ON, 7 D OFF
     Route: 050
     Dates: start: 202304
  2. ATORVASTATIN [Concomitant]
     Active Substance: ATORVASTATIN
  3. INVOKANA [Concomitant]
     Active Substance: CANAGLIFLOZIN
  4. LOPERAMIDE [Concomitant]
     Active Substance: LOPERAMIDE
  5. METFORMIN [Concomitant]
  6. OMEGA-3 FATTY ACIDS [Concomitant]
     Active Substance: OMEGA-3 FATTY ACIDS
  7. ONDANSETRON [Concomitant]
  8. TAMSULOSIN [Concomitant]

REACTIONS (1)
  - Intensive care [None]
